FAERS Safety Report 7703487-1 (Version None)
Quarter: 2011Q3

REPORT INFORMATION
  Report Type: 
  Country: None (occurrence: None)
  Receive Date: 20110823
  Receipt Date: 20110816
  Transmission Date: 20111222
  Serious: Yes (Life-Threatening, Hospitalization, Other)
  Sender: FDA-Public Use
  Company Number: DE-PFIZER INC-2009262232

PATIENT
  Age: 66 Year
  Sex: Female
  Weight: 52 kg

DRUGS (22)
  1. TIGECYCLINE [Suspect]
     Indication: BACTERIAL INFECTION
     Dosage: 100 MG, 1X/DAY
     Route: 042
     Dates: start: 20090826, end: 20090826
  2. TIGECYCLINE [Suspect]
     Dosage: 50 MG, 1X/DAY
     Route: 042
     Dates: start: 20090827, end: 20090829
  3. BETAISODONA [Concomitant]
     Dosage: UNK
     Route: 048
     Dates: start: 20090802
  4. HEPARIN [Concomitant]
     Dosage: UNK
     Route: 042
     Dates: start: 20090808, end: 20090826
  5. ANIDULAFUNGIN [Suspect]
     Indication: ASPERGILLOSIS
     Dosage: 200 MG, 1X/DAY
     Route: 042
     Dates: start: 20090825, end: 20090825
  6. VORICONAZOLE [Suspect]
     Indication: ASPERGILLOSIS
     Dosage: 4 MG/KG, 2X/DAY
     Route: 042
     Dates: start: 20090825, end: 20090829
  7. AMPHOTERICIN B [Concomitant]
     Dosage: UNK
     Route: 048
     Dates: start: 20090802
  8. LEVOTHYROXINE SODIUM [Concomitant]
     Dosage: UNK
     Route: 048
     Dates: start: 20090802
  9. PANTOPRAZOLE [Concomitant]
     Dosage: UNK
     Route: 048
     Dates: end: 20090824
  10. TARGOCID [Concomitant]
     Dosage: UNK
     Route: 042
     Dates: end: 20090826
  11. SPIRONOLACTONE [Concomitant]
     Dosage: UNK
     Route: 048
     Dates: start: 20090828, end: 20090828
  12. KONAKION [Concomitant]
     Dosage: UNK
     Route: 042
     Dates: start: 20090828, end: 20090830
  13. ANIDULAFUNGIN [Suspect]
     Dosage: 100 MG, 1X/DAY
     Route: 042
     Dates: start: 20090826, end: 20090828
  14. RANITIC [Concomitant]
     Dosage: UNK
     Route: 042
     Dates: start: 20090825, end: 20090830
  15. POTASSIUM CHLORIDE [Concomitant]
     Dosage: UNK
     Route: 042
     Dates: start: 20090825, end: 20090825
  16. ACICLOVIR [Concomitant]
     Dosage: UNK
     Route: 042
     Dates: start: 20090826, end: 20090828
  17. ZOFRAN [Concomitant]
     Dosage: UNK
     Route: 042
     Dates: start: 20090826, end: 20090831
  18. CEFTAZIDIME SODIUM [Concomitant]
     Dosage: UNK
     Route: 042
     Dates: start: 20090826
  19. MEROPENEM [Concomitant]
     Dosage: UNK
     Route: 042
     Dates: end: 20090826
  20. LEVOFLOXACIN [Concomitant]
     Dosage: UNK
     Route: 048
     Dates: start: 20090802, end: 20090828
  21. TARGOCID [Concomitant]
     Dosage: UNK
     Route: 042
     Dates: start: 20090829
  22. LASIX [Concomitant]
     Dosage: UNK
     Route: 042
     Dates: start: 20090829, end: 20090829

REACTIONS (4)
  - DEVICE RELATED INFECTION [None]
  - RESPIRATORY FAILURE [None]
  - RENAL FAILURE [None]
  - HEPATIC FAILURE [None]
